FAERS Safety Report 5506212-8 (Version None)
Quarter: 2007Q4

REPORT INFORMATION
  Report Type: 
  Country: None (occurrence: None)
  Receive Date: 20071105
  Receipt Date: 20071026
  Transmission Date: 20080405
  Serious: Yes (Other)
  Sender: FDA-Public Use
  Company Number: US-BAYER-200713508BCC

PATIENT
  Age: 51 Year
  Sex: Female
  Weight: 53 kg

DRUGS (10)
  1. CITRACAL CAPLETS + D TABLETS [Suspect]
     Indication: MINERAL SUPPLEMENTATION
     Route: 048
  2. FLONASE [Concomitant]
  3. ALLEGRA [Concomitant]
  4. RESTASIS [Concomitant]
  5. VAGIFEM [Concomitant]
  6. NATURE ESTER C [Concomitant]
  7. CENTRUM SILVER MULTIVITAMIN [Concomitant]
  8. KIRKLAND FISH OIL [Concomitant]
  9. KIRKLAND VITAMIN E [Concomitant]
  10. GUAIFENESIN [Concomitant]

REACTIONS (1)
  - THYROID CANCER [None]
